FAERS Safety Report 12252176 (Version 4)
Quarter: 2016Q4

REPORT INFORMATION
  Report Type: Spontaneous
  Country: US (occurrence: US)
  Receive Date: 20160411
  Receipt Date: 20161220
  Transmission Date: 20170207
  Serious: Yes (Hospitalization, Other)
  Sender: FDA-Public Use
  Company Number: PHEH2016US007841

PATIENT
  Age: 74 Year
  Sex: Female
  Weight: 79.8 kg

DRUGS (26)
  1. PALBOCICLIB [Suspect]
     Active Substance: PALBOCICLIB
     Dosage: 75 OT, UNK (2 W ON 2 W OFF)
     Route: 065
     Dates: start: 20160802
  2. ASPIRIN. [Concomitant]
     Active Substance: ASPIRIN
     Indication: PRODUCT USED FOR UNKNOWN INDICATION
     Dosage: 81 MG, QD
     Route: 048
     Dates: start: 200502
  3. XARELTO [Concomitant]
     Active Substance: RIVAROXABAN
     Indication: PRODUCT USED FOR UNKNOWN INDICATION
     Dosage: 20 MG, QD (1 TABLET)
     Route: 048
  4. PALBOCICLIB [Suspect]
     Active Substance: PALBOCICLIB
     Dosage: 75 OT, UNK
     Route: 065
     Dates: start: 20160512
  5. PALBOCICLIB [Suspect]
     Active Substance: PALBOCICLIB
     Dosage: 75 OT, UNK (2 W ON 2 W OFF)
     Route: 065
     Dates: start: 20160707
  6. VITAMIN B12 [Concomitant]
     Active Substance: CYANOCOBALAMIN
     Indication: PRODUCT USED FOR UNKNOWN INDICATION
     Dosage: 1000 U, QD (ONCE A DAY IN MORNING)
     Route: 065
  7. ANTIVERT [Concomitant]
     Active Substance: MECLIZINE HYDROCHLORIDE
     Indication: DIZZINESS
     Dosage: 30 MG, PRN
     Route: 065
  8. POTASSIUM CHLORIDE. [Concomitant]
     Active Substance: POTASSIUM CHLORIDE
     Indication: PRODUCT USED FOR UNKNOWN INDICATION
     Dosage: 20 MG, UNK (NIGHTLY)
     Route: 048
     Dates: start: 200502
  9. ERGOCALCIFEROL. [Concomitant]
     Active Substance: ERGOCALCIFEROL
     Indication: PRODUCT USED FOR UNKNOWN INDICATION
     Dosage: 1000 IU, UNK
     Route: 048
  10. PALBOCICLIB [Suspect]
     Active Substance: PALBOCICLIB
     Dosage: 75 OT, UNK
     Route: 065
     Dates: start: 20160505
  11. NEURONTIN [Concomitant]
     Active Substance: GABAPENTIN
     Indication: PRODUCT USED FOR UNKNOWN INDICATION
     Dosage: 600 MG, UNK (EVERY EVENING)
     Route: 048
  12. PALBOCICLIB [Suspect]
     Active Substance: PALBOCICLIB
     Dosage: 75 MG, (TAKE  DAILY FOR 21 DAYS OPFF FOR 7 DAYS)
     Route: 065
  13. PALBOCICLIB [Suspect]
     Active Substance: PALBOCICLIB
     Dosage: 75 OT, UNK
     Route: 065
     Dates: start: 20160407
  14. PALBOCICLIB [Suspect]
     Active Substance: PALBOCICLIB
     Dosage: 75 UNK, UNK ((2 W ON 2 W OFF))
     Route: 065
     Dates: start: 20160830
  15. TOPROL XL [Concomitant]
     Active Substance: METOPROLOL SUCCINATE
     Indication: PRODUCT USED FOR UNKNOWN INDICATION
     Dosage: 1 DF, UNK (IN NIGHT)
     Route: 048
  16. ANTIVERT [Concomitant]
     Active Substance: MECLIZINE HYDROCHLORIDE
     Indication: NAUSEA
  17. PALBOCICLIB [Suspect]
     Active Substance: PALBOCICLIB
     Indication: METASTASES TO PLEURA
     Dosage: 125 MG, QD (ONCE A DAY)
     Route: 065
     Dates: start: 20150506
  18. PALBOCICLIB [Suspect]
     Active Substance: PALBOCICLIB
     Dosage: 75 OT, UNK (2 W ON 2 W OFF)
     Route: 065
     Dates: start: 20160609
  19. ORETIC [Concomitant]
     Active Substance: HYDROCHLOROTHIAZIDE
     Indication: PRODUCT USED FOR UNKNOWN INDICATION
     Dosage: 1 DF, QD
     Route: 048
  20. ATORVASTATIN [Concomitant]
     Active Substance: ATORVASTATIN
     Indication: PRODUCT USED FOR UNKNOWN INDICATION
     Dosage: 80 MG, UNK
     Route: 065
     Dates: start: 200502
  21. FEMARA [Suspect]
     Active Substance: LETROZOLE
     Indication: BREAST CANCER METASTATIC
     Dosage: 2.5 MG, QD (ONCE A DAY)
     Route: 065
     Dates: start: 20150430
  22. CALCIUM CARBONATE. [Concomitant]
     Active Substance: CALCIUM CARBONATE
     Indication: PRODUCT USED FOR UNKNOWN INDICATION
     Dosage: 500 MG, QD (ONCE A DAY IN MORNING)
     Route: 048
  23. VITAMIN B2 [Concomitant]
     Active Substance: RIBOFLAVIN
     Indication: PRODUCT USED FOR UNKNOWN INDICATION
     Dosage: 5000 U, QD (ONCE A DAY IN MORNING)
     Route: 048
  24. LIPITOR [Concomitant]
     Active Substance: ATORVASTATIN CALCIUM
     Indication: PRODUCT USED FOR UNKNOWN INDICATION
     Dosage: 1 DF, UNK (NIGHTLY)
     Route: 048
  25. COZAAR [Concomitant]
     Active Substance: LOSARTAN POTASSIUM
     Indication: PRODUCT USED FOR UNKNOWN INDICATION
     Dosage: 100 MG, UNK (NIGHT)
     Route: 048
  26. PALBOCICLIB [Suspect]
     Active Substance: PALBOCICLIB
     Dosage: 100 MG, UNK
     Route: 065

REACTIONS (18)
  - Malignant neoplasm of pleura [Unknown]
  - Metastases to lung [Unknown]
  - Lung neoplasm malignant [Unknown]
  - Neuropathy peripheral [Unknown]
  - Chondropathy [Unknown]
  - Platelet count decreased [Recovered/Resolved]
  - Bone disorder [Unknown]
  - Thrombosis [Recovered/Resolved]
  - Pulmonary embolism [Unknown]
  - Neutrophil count decreased [Recovered/Resolved]
  - Fatigue [Recovered/Resolved]
  - Stomatitis [Recovered/Resolved]
  - Osteopenia [Unknown]
  - Deafness bilateral [Unknown]
  - Deafness neurosensory [Unknown]
  - Haemorrhoids [Unknown]
  - White blood cell count decreased [Recovered/Resolved]
  - Dyspnoea [Unknown]

NARRATIVE: CASE EVENT DATE: 201505
